FAERS Safety Report 9234927 (Version 1)
Quarter: 2013Q2

REPORT INFORMATION
  Report Type: Spontaneous
  Country: US (occurrence: US)
  Receive Date: 20130416
  Receipt Date: 20130416
  Transmission Date: 20140414
  Serious: No
  Sender: FDA-Public Use
  Company Number: US-BANPHARM-20120277

PATIENT
  Age: 67 Year
  Sex: Female
  Weight: 83.5 kg

DRUGS (4)
  1. ALEVE LIQUID GELS 220 MG [Suspect]
     Indication: BACK PAIN
     Dosage: 1 DF,
     Route: 048
     Dates: start: 20121015
  2. GLIMEPIRIDE [Concomitant]
  3. METAXALONE 400 MG [Concomitant]
  4. METFORMIN [Concomitant]

REACTIONS (2)
  - Drug effect decreased [Not Recovered/Not Resolved]
  - Therapeutic response unexpected with drug substitution [Not Recovered/Not Resolved]
